FAERS Safety Report 8288482-9 (Version None)
Quarter: 2012Q2

REPORT INFORMATION
  Report Type: 
  Country: None (occurrence: None)
  Receive Date: 20120416
  Receipt Date: 20120402
  Transmission Date: 20120825
  Serious: Yes (Death, Hospitalization)
  Sender: FDA-Public Use
  Company Number: US-BAXTER-2012BAX000576

PATIENT
  Sex: Male

DRUGS (5)
  1. DIANEAL PD-2 W/ DEXTROSE 1.5% [Suspect]
     Route: 033
     Dates: end: 20120402
  2. DIANEAL PD-2 W/ DEXTROSE 1.5% [Suspect]
     Route: 033
     Dates: end: 20120402
  3. DIANEAL PD-2 W/ DEXTROSE 1.5% [Suspect]
     Indication: PERITONEAL DIALYSIS
     Route: 033
     Dates: end: 20120402
  4. DIANEAL PD-2 W/ DEXTROSE 1.5% [Suspect]
     Indication: PERITONEAL DIALYSIS
     Route: 033
     Dates: end: 20120402
  5. DIANEAL PD-2 W/ DEXTROSE 1.5% [Suspect]
     Route: 033
     Dates: end: 20120402

REACTIONS (4)
  - CARDIAC FAILURE CONGESTIVE [None]
  - CARDIAC FAILURE [None]
  - MYOCARDIAL INFARCTION [None]
  - ASCITES [None]
